FAERS Safety Report 7242807-1 (Version None)
Quarter: 2011Q1

REPORT INFORMATION
  Report Type: 
  Country: None (occurrence: None)
  Receive Date: 20110125
  Receipt Date: 20110114
  Transmission Date: 20110831
  Serious: Yes (Other)
  Sender: FDA-Public Use
  Company Number: US-JNJFOC-20110103939

PATIENT
  Age: 53 Year
  Sex: Female
  Weight: 64.41 kg

DRUGS (37)
  1. GEODON [Suspect]
     Route: 048
  2. GEODON [Suspect]
     Indication: ANXIETY
     Route: 048
  3. FOCALIN [Suspect]
     Indication: ATTENTION DEFICIT/HYPERACTIVITY DISORDER
     Route: 065
  4. GEODON [Suspect]
     Indication: SUICIDE ATTEMPT
     Route: 048
  5. GEODON [Suspect]
     Route: 048
  6. GEODON [Suspect]
     Indication: BRAIN INJURY
     Route: 048
  7. GEODON [Suspect]
     Route: 048
  8. DOXAZOSIN MESYLATE [Concomitant]
     Indication: MUSCLE RELAXANT THERAPY
     Route: 065
  9. GEODON [Suspect]
     Route: 048
  10. GEODON [Suspect]
     Route: 048
  11. GLUCOPHAGE [Concomitant]
     Indication: DIABETES MELLITUS
     Route: 065
  12. DIOVAN [Concomitant]
     Indication: HYPERTENSION
     Route: 065
  13. HALOPERIDOL [Concomitant]
     Route: 065
  14. GEODON [Suspect]
     Route: 048
  15. GEODON [Suspect]
     Route: 048
  16. BYETTA [Suspect]
     Indication: BLOOD GLUCOSE ABNORMAL
     Route: 065
  17. SYNTHROID [Concomitant]
     Indication: HYPOTHYROIDISM
     Route: 065
  18. GEODON [Suspect]
     Route: 048
  19. GEODON [Suspect]
     Route: 048
  20. GEODON [Suspect]
     Route: 048
  21. GEODON [Suspect]
     Route: 048
  22. GEODON [Suspect]
     Indication: DEPRESSION
     Route: 048
  23. GEODON [Suspect]
     Route: 048
  24. GEODON [Suspect]
     Indication: BIPOLAR DISORDER
     Route: 048
  25. COCAINE [Suspect]
     Indication: ILL-DEFINED DISORDER
     Route: 065
  26. ALLEGRA [Concomitant]
     Indication: RHINITIS ALLERGIC
     Route: 065
  27. TRICOR [Concomitant]
     Indication: BLOOD TRIGLYCERIDES
     Route: 065
  28. RISPERDAL [Suspect]
     Route: 048
  29. GEODON [Suspect]
     Route: 048
  30. TELMISARTAN [Concomitant]
     Route: 065
  31. FLUOXETINE [Concomitant]
     Route: 065
  32. RISPERDAL [Suspect]
     Indication: ILL-DEFINED DISORDER
     Route: 048
  33. GEODON [Suspect]
     Route: 048
  34. GEODON [Suspect]
     Route: 048
  35. ALLEGRA [Concomitant]
     Indication: HYPERSENSITIVITY
     Route: 065
  36. CARDIZEM LA [Concomitant]
     Indication: HYPERTENSION
     Route: 065
  37. DIABETA [Concomitant]
     Indication: DIABETES MELLITUS
     Route: 065

REACTIONS (11)
  - EUPHORIC MOOD [None]
  - URINARY RETENTION [None]
  - POLLAKIURIA [None]
  - CONSTIPATION [None]
  - DIABETES MELLITUS [None]
  - HEPATOMEGALY [None]
  - DISTURBANCE IN ATTENTION [None]
  - BLUNTED AFFECT [None]
  - DIABETIC NEUROPATHY [None]
  - SOMNOLENCE [None]
  - DRY MOUTH [None]
